FAERS Safety Report 13603729 (Version 1)
Quarter: 2017Q2

REPORT INFORMATION
  Report Type: Report from Study
  Country: None (occurrence: NL)
  Receive Date: 20170602
  Receipt Date: 20170602
  Transmission Date: 20170830
  Serious: Yes (Hospitalization)
  Sender: FDA-Public Use
  Company Number: NL-ABBVIE-17K-114-1994889-00

PATIENT
  Sex: Female

DRUGS (1)
  1. DUODOPA [Suspect]
     Active Substance: CARBIDOPA\LEVODOPA
     Indication: PARKINSON^S DISEASE
     Dosage: MORNING DOSE: 6  CONTINUOUS DOSE:?3.9     EXTRA DOSE: 2.8    NIGHT DOSE:  2.9
     Route: 050
     Dates: start: 20131112

REACTIONS (1)
  - Malaise [Not Recovered/Not Resolved]
